FAERS Safety Report 15255000 (Version 1)
Quarter: 2018Q3

REPORT INFORMATION
  Report Type: Spontaneous
  Country: IE (occurrence: IE)
  Receive Date: 20180808
  Receipt Date: 20180808
  Transmission Date: 20181010
  Serious: Yes (Other)
  Sender: FDA-Public Use
  Company Number: IE-LPDUSPRD-20181384

PATIENT
  Age: 31 Year
  Sex: Male
  Weight: 108 kg

DRUGS (1)
  1. FERINJECT [Suspect]
     Active Substance: FERRIC CARBOXYMALTOSE
     Dosage: 500 MG/UNSPECIFIED DILUTION
     Route: 048
     Dates: start: 20180705, end: 20180707

REACTIONS (6)
  - Ear discomfort [Unknown]
  - Throat irritation [Unknown]
  - Nausea [Unknown]
  - Incorrect route of drug administration [Unknown]
  - Dry throat [Unknown]
  - Dizziness [Unknown]

NARRATIVE: CASE EVENT DATE: 20180705
